FAERS Safety Report 9176432 (Version 1)
Quarter: 2013Q1

REPORT INFORMATION
  Report Type: Spontaneous
  Country: US (occurrence: None)
  Receive Date: 20130319
  Receipt Date: 20130319
  Transmission Date: 20140127
  Serious: Yes (Death, Hospitalization)
  Sender: FDA-Public Use
  Company Number: 2013STPI000085

PATIENT
  Age: 22 Year
  Sex: 0
  Weight: 97.5 kg

DRUGS (1)
  1. MATULANE [Suspect]
     Route: 048
     Dates: start: 20121220

REACTIONS (1)
  - Death [None]
